FAERS Safety Report 17174854 (Version 1)
Quarter: 2019Q4

REPORT INFORMATION
  Report Type: Spontaneous
  Country: US (occurrence: US)
  Receive Date: 20191219
  Receipt Date: 20191219
  Transmission Date: 20200122
  Serious: No
  Sender: FDA-Public Use
  Company Number: US-UCBSA-118224

PATIENT
  Sex: Female

DRUGS (10)
  1. MEDROL [Concomitant]
     Active Substance: METHYLPREDNISOLONE
     Dosage: DAILY DOSE: 15 MG
  2. MEDROL [Concomitant]
     Active Substance: METHYLPREDNISOLONE
     Dosage: DAILY DOSE:12MG
     Dates: start: 201401
  3. ENBREL [Suspect]
     Active Substance: ETANERCEPT
  4. MEDROL [Concomitant]
     Active Substance: METHYLPREDNISOLONE
     Dosage: DAILY DOSE: 12 MG
  5. PLAQUENIL [Concomitant]
     Active Substance: HYDROXYCHLOROQUINE SULFATE
  6. MTX [Concomitant]
     Active Substance: METHOTREXATE SODIUM
  7. CIMZIA [Suspect]
     Active Substance: CERTOLIZUMAB PEGOL
  8. HUMIRA [Suspect]
     Active Substance: ADALIMUMAB
  9. RITUXAN [Suspect]
     Active Substance: RITUXIMAB
  10. LEUVAVOR [Concomitant]

REACTIONS (2)
  - Drug ineffective [Unknown]
  - Pain [Unknown]
